FAERS Safety Report 11745858 (Version 3)
Quarter: 2016Q1

REPORT INFORMATION
  Report Type: Report from Study
  Country: NL (occurrence: NL)
  Receive Date: 20151117
  Receipt Date: 20160125
  Transmission Date: 20160525
  Serious: Yes (Hospitalization)
  Sender: FDA-Public Use
  Company Number: NL-TEVA-605925ISR

PATIENT
  Age: 43 Year
  Sex: Female

DRUGS (10)
  1. CYCLOFOSFAMIDE [Suspect]
     Active Substance: CYCLOPHOSPHAMIDE
     Indication: CHEMOTHERAPY
     Dosage: 910 MILLIGRAM DAILY;
     Route: 042
     Dates: start: 20151027, end: 20151027
  2. MAGNESIUM HYDROXIDE. [Concomitant]
     Active Substance: MAGNESIUM HYDROXIDE
     Indication: CONSTIPATION
     Dosage: 1448 MILLIGRAM DAILY;
     Route: 048
     Dates: start: 20151028, end: 20151029
  3. DEXAMETHASON [Concomitant]
     Active Substance: DEXAMETHASONE
     Indication: ANALGESIC THERAPY
     Dosage: 8 MILLIGRAM DAILY;
     Route: 048
     Dates: start: 20151027, end: 20151027
  4. DOXORUBICIN [Suspect]
     Active Substance: DOXORUBICIN
     Indication: CHEMOTHERAPY
     Dosage: 91 MILLIGRAM DAILY;
     Route: 042
     Dates: start: 20151027, end: 20151027
  5. APREPITANT. [Concomitant]
     Active Substance: APREPITANT
     Indication: NAUSEA
     Dosage: 125 MILLIGRAM DAILY;
     Route: 048
     Dates: start: 20151027, end: 20151027
  6. DIAZEPAM. [Concomitant]
     Active Substance: DIAZEPAM
     Indication: PROPHYLAXIS
     Route: 048
     Dates: start: 20151022, end: 20151103
  7. LONQUEX 6MG [Suspect]
     Active Substance: LIPEGFILGRASTIM
     Indication: PROPHYLAXIS
     Dosage: 6 MILLIGRAM DAILY;
     Route: 058
     Dates: start: 20151028, end: 20151028
  8. GRANISETRON [Concomitant]
     Active Substance: GRANISETRON
     Indication: NAUSEA
     Dosage: 3 MILLIGRAM DAILY;
     Route: 042
     Dates: start: 20151027, end: 20151027
  9. METOCLOPRAMIDE. [Concomitant]
     Active Substance: METOCLOPRAMIDE
     Indication: NAUSEA
     Dosage: 30 MILLIGRAM DAILY;
     Route: 048
     Dates: start: 20151028, end: 20151029
  10. DOCETAXEL. [Suspect]
     Active Substance: DOCETAXEL
     Indication: CHEMOTHERAPY
     Dosage: 135 MILLIGRAM DAILY;
     Route: 042
     Dates: start: 20151027, end: 20151027

REACTIONS (3)
  - Malaise [Recovered/Resolved]
  - Haematuria [Recovered/Resolved]
  - Dizziness [Recovered/Resolved]

NARRATIVE: CASE EVENT DATE: 20151028
